FAERS Safety Report 14984952 (Version 1)
Quarter: 2018Q2

REPORT INFORMATION
  Report Type: Spontaneous
  Country: US (occurrence: US)
  Receive Date: 20180516
  Receipt Date: 20180516
  Transmission Date: 20180711
  Serious: No
  Sender: FDA-Public Use
  Company Number: None

PATIENT
  Age: 83 Year
  Sex: Female

DRUGS (2)
  1. IBRANCE [Suspect]
     Active Substance: PALBOCICLIB
     Indication: BREAST CANCER
     Dosage: 125MG QD FOR 21 DAYS ON, THEN 7 DAYS OFF BY MOUTH
     Route: 048
     Dates: start: 20170306, end: 20171127
  2. IBRANCE [Suspect]
     Active Substance: PALBOCICLIB
     Dosage: 100MG QD FOR 21 DAYS ON, THEN 7 DAYS OFF BY MOUTH
     Route: 048
     Dates: start: 20171128

REACTIONS (4)
  - Dizziness [None]
  - Asthenia [None]
  - Malaise [None]
  - White blood cell count decreased [None]

NARRATIVE: CASE EVENT DATE: 20180215
